FAERS Safety Report 13487028 (Version 1)
Quarter: 2017Q2

REPORT INFORMATION
  Report Type: Spontaneous
  Country: FR (occurrence: FR)
  Receive Date: 20170426
  Receipt Date: 20170426
  Transmission Date: 20170830
  Serious: Yes (Hospitalization)
  Sender: FDA-Public Use
  Company Number: FR-JNJFOC-20170424175

PATIENT
  Age: 73 Year
  Sex: Male

DRUGS (9)
  1. LASILIX [Concomitant]
     Active Substance: FUROSEMIDE
     Route: 065
  2. APIXABAN [Concomitant]
     Active Substance: APIXABAN
     Route: 065
  3. ONBREZ [Concomitant]
     Active Substance: INDACATEROL
     Route: 065
  4. CANDESARTAN. [Concomitant]
     Active Substance: CANDESARTAN
     Route: 065
  5. XARELTO [Suspect]
     Active Substance: RIVAROXABAN
     Indication: THROMBOSIS PROPHYLAXIS
     Route: 048
     Dates: start: 201611, end: 20170315
  6. CERIS [Concomitant]
     Active Substance: TROSPIUM CHLORIDE
     Route: 065
  7. AIROMIR [Concomitant]
     Active Substance: ALBUTEROL SULFATE
     Route: 065
  8. PRAVASTATIN. [Concomitant]
     Active Substance: PRAVASTATIN
     Route: 065
  9. LERCAN [Concomitant]
     Active Substance: LERCANIDIPINE
     Route: 065

REACTIONS (1)
  - Eczema [Recovering/Resolving]

NARRATIVE: CASE EVENT DATE: 201702
